FAERS Safety Report 8237152-1 (Version None)
Quarter: 2012Q1

REPORT INFORMATION
  Report Type: 
  Country: None (occurrence: None)
  Receive Date: 20120327
  Receipt Date: 20120322
  Transmission Date: 20120608
  Serious: No
  Sender: FDA-Public Use
  Company Number: US-PFIZER INC-2012075220

PATIENT
  Sex: Female
  Weight: 172 kg

DRUGS (6)
  1. HYDROCODONE [Concomitant]
     Dosage: 7.5/500 MG TWO TIMES A DAY
  2. PROTONIX [Concomitant]
     Indication: GASTROOESOPHAGEAL REFLUX DISEASE
     Dosage: 40 MG, 1X/DAY
  3. WARFARIN SODIUM [Concomitant]
     Indication: ANTICOAGULANT THERAPY
     Dosage: 7.5 MG, 1X/DAY
  4. IBUPROFEN [Concomitant]
     Indication: PAIN
     Dosage: UNK
  5. TRAMADOL [Concomitant]
     Indication: PAIN
     Dosage: UNK
  6. LYRICA [Suspect]
     Dosage: 100 MG, 3X/DAY
     Dates: end: 20120201

REACTIONS (2)
  - MALAISE [None]
  - NEUROPATHY PERIPHERAL [None]
